FAERS Safety Report 5382570-2 (Version None)
Quarter: 2007Q3

REPORT INFORMATION
  Report Type: 
  Country: None (occurrence: None)
  Receive Date: 20070710
  Receipt Date: 20070627
  Transmission Date: 20080115
  Serious: Yes (Other)
  Sender: FDA-Public Use
  Company Number: PHBS2007JP11012

PATIENT
  Age: 11 Year
  Sex: Male

DRUGS (2)
  1. CYCLOSPORINE [Suspect]
     Route: 065
     Dates: end: 20021001
  2. CYCLOSPORINE [Suspect]
     Route: 065
     Dates: start: 20030501, end: 20050801

REACTIONS (2)
  - NEPHROPATHY [None]
  - TUBULOINTERSTITIAL NEPHRITIS [None]
